FAERS Safety Report 12142428 (Version 1)
Quarter: 2016Q1

REPORT INFORMATION
  Report Type: Spontaneous
  Country: NZ (occurrence: NZ)
  Receive Date: 20160303
  Receipt Date: 20160303
  Transmission Date: 20160526
  Serious: Yes (Hospitalization, Other)
  Sender: FDA-Public Use
  Company Number: NZ-009507513-0606NZL00013

PATIENT
  Age: 67 Year
  Sex: Female

DRUGS (3)
  1. CALCIUM CARBONATE. [Concomitant]
     Active Substance: CALCIUM CARBONATE
     Dosage: 2.5 G, QD
     Route: 048
  2. ALENDRONATE SODIUM. [Suspect]
     Active Substance: ALENDRONATE SODIUM
     Dosage: 70 MG, QW
     Route: 048
     Dates: start: 20050925, end: 20051016
  3. MULTIVITE [Concomitant]
     Active Substance: VITAMINS
     Dosage: 2 DF, QD
     Route: 048

REACTIONS (5)
  - Pain in extremity [Recovered/Resolved]
  - Exophthalmos [Recovered/Resolved]
  - Conjunctivitis [Recovered/Resolved]
  - IIIrd nerve paralysis [Recovered/Resolved]
  - Oedema [Recovered/Resolved]

NARRATIVE: CASE EVENT DATE: 20051001
